FAERS Safety Report 25716622 (Version 1)
Quarter: 2025Q3

REPORT INFORMATION
  Report Type: Spontaneous
  Country: CN (occurrence: CN)
  Receive Date: 20250822
  Receipt Date: 20250822
  Transmission Date: 20251020
  Serious: Yes (Other)
  Sender: PURDUE
  Company Number: CN-NAPPMUNDI-GBR-2025-0128211

PATIENT
  Age: 57 Year
  Sex: Male

DRUGS (1)
  1. MORPHINE SULFATE [Suspect]
     Active Substance: MORPHINE SULFATE
     Indication: Cancer pain
     Dosage: 20 MILLIGRAM, BID
     Route: 048
     Dates: start: 20250806, end: 20250809

REACTIONS (1)
  - Mental disorder [Recovering/Resolving]

NARRATIVE: CASE EVENT DATE: 20250808
